FAERS Safety Report 8809968 (Version 3)
Quarter: 2013Q3

REPORT INFORMATION
  Report Type: Spontaneous
  Country: ZA (occurrence: ZA)
  Receive Date: 20120926
  Receipt Date: 20130805
  Transmission Date: 20140515
  Serious: Yes (Life-Threatening, Hospitalization, Other)
  Sender: FDA-Public Use
  Company Number: ZA-009507513-1208ZAF007895

PATIENT
  Age: 31 Year
  Sex: Female
  Weight: 88 kg

DRUGS (4)
  1. ESMERON [Suspect]
     Indication: GENERAL ANAESTHESIA
     Dosage: 30 ML ONCE, (0.5 MG/KG), 10 MG/ML
     Route: 040
  2. DIPRIVAN [Concomitant]
     Indication: GENERAL ANAESTHESIA
     Dosage: 200 MG,QD
     Route: 041
     Dates: start: 20120720
  3. SUFENTANIL [Concomitant]
     Dosage: 10 MICROGRAM, QD
     Route: 042
     Dates: start: 20120720
  4. SEREVENT [Concomitant]

REACTIONS (5)
  - Cardiac arrest [Recovered/Resolved]
  - Endotracheal intubation [Unknown]
  - Anaphylactic reaction [Recovered/Resolved]
  - Bronchospasm [Recovered/Resolved]
  - Laparoscopy [Unknown]
